FAERS Safety Report 13165646 (Version 1)
Quarter: 2017Q1

REPORT INFORMATION
  Report Type: Spontaneous
  Country: CA (occurrence: CA)
  Receive Date: 20170131
  Receipt Date: 20170131
  Transmission Date: 20170428
  Serious: Yes (Other)
  Sender: FDA-Public Use
  Company Number: CA-009507513-1701CAN011341

PATIENT
  Sex: Female

DRUGS (1)
  1. FOSAMAX [Suspect]
     Active Substance: ALENDRONATE SODIUM
     Route: 048

REACTIONS (10)
  - Constipation [Unknown]
  - Osteoporosis [Unknown]
  - Gastric disorder [Unknown]
  - Hypertension [Unknown]
  - Fall [Unknown]
  - Rheumatoid arthritis [Unknown]
  - Femur fracture [Unknown]
  - Tibia fracture [Unknown]
  - Type 2 diabetes mellitus [Unknown]
  - Fibula fracture [Unknown]

NARRATIVE: CASE EVENT DATE: 2006
